FAERS Safety Report 25786092 (Version 1)
Quarter: 2025Q3

REPORT INFORMATION
  Report Type: Spontaneous
  Country: US (occurrence: US)
  Receive Date: 20250910
  Receipt Date: 20250910
  Transmission Date: 20251021
  Serious: No
  Sender: PFIZER
  Company Number: US-PFIZER INC-202500176059

PATIENT
  Sex: Female
  Weight: 52.608 kg

DRUGS (1)
  1. ESTRING [Suspect]
     Active Substance: ESTRADIOL
     Indication: Blood oestrogen decreased

REACTIONS (1)
  - Therapeutic response unexpected [Unknown]
